FAERS Safety Report 8304118-2 (Version None)
Quarter: 2012Q2

REPORT INFORMATION
  Report Type: 
  Country: None (occurrence: None)
  Receive Date: 20120418
  Receipt Date: 20120402
  Transmission Date: 20120825
  Serious: Yes (Hospitalization)
  Sender: FDA-Public Use
  Company Number: 20120206

PATIENT
  Age: 74 Year
  Sex: Female

DRUGS (3)
  1. VENOFER [Suspect]
     Indication: IRON DEFICIENCY ANAEMIA
     Dosage: 300 MG, 2 DOSES IN 14 DAYS INTRAVENOUS DRP
     Route: 041
     Dates: start: 20111101, end: 20111101
  2. VENOFER [Suspect]
     Indication: DIVERTICULITIS
     Dosage: 300 MG, 2 DOSES IN 14 DAYS INTRAVENOUS DRP
     Route: 041
     Dates: start: 20111101, end: 20111101
  3. VENOFER [Suspect]
     Dosage: 300 MG, MONTHLY, INTRAVENOUS DRIP
     Route: 041
     Dates: start: 20111201

REACTIONS (4)
  - HEADACHE [None]
  - HYPERTENSIVE CRISIS [None]
  - NAUSEA [None]
  - DISORIENTATION [None]
